FAERS Safety Report 5697979-7 (Version None)
Quarter: 2008Q2

REPORT INFORMATION
  Report Type: 
  Country: None (occurrence: None)
  Receive Date: 20080408
  Receipt Date: 20080403
  Transmission Date: 20081010
  Serious: Yes (Death, Hospitalization, Other)
  Sender: FDA-Public Use
  Company Number: SE-ABBOTT-08P-150-0444629-00

PATIENT
  Age: 83 Year
  Sex: Male

DRUGS (1)
  1. ZEMPLAR [Suspect]
     Indication: DRUG USE FOR UNKNOWN INDICATION
     Dosage: 5 MCG/ML
     Route: 050

REACTIONS (13)
  - ASTHMA [None]
  - C-REACTIVE PROTEIN INCREASED [None]
  - CHRONIC OBSTRUCTIVE PULMONARY DISEASE [None]
  - DYSPNOEA [None]
  - GENERAL PHYSICAL HEALTH DETERIORATION [None]
  - MULTI-ORGAN FAILURE [None]
  - OEDEMA [None]
  - OXYGEN SATURATION ABNORMAL [None]
  - PNEUMONIA [None]
  - RESPIRATORY FAILURE [None]
  - RESPIRATORY RATE INCREASED [None]
  - SEPSIS [None]
  - WHITE BLOOD CELL COUNT INCREASED [None]
